FAERS Safety Report 22957562 (Version 4)
Quarter: 2023Q4

REPORT INFORMATION
  Report Type: Report from Study
  Country: JP (occurrence: None)
  Receive Date: 20230919
  Receipt Date: 20231031
  Transmission Date: 20240110
  Serious: Yes (Hospitalization)
  Sender: FDA-Public Use
  Company Number: JP-ROCHE-3424263

PATIENT
  Age: 61 Year
  Sex: Female
  Weight: 157.8 kg

DRUGS (4)
  1. RITUXIMAB [Suspect]
     Active Substance: RITUXIMAB
     Indication: Follicular lymphoma
     Route: 041
     Dates: start: 20221117
  2. RITUXIMAB [Suspect]
     Active Substance: RITUXIMAB
     Dosage: THE LAST DOSE OF RITUXIMAB PRIOR TO THE SERIOUS ADVERSE EVENT (SAE) WAS ADMINISTERED ON 09/MAR/2023.
     Route: 041
  3. LENALIDOMIDE [Suspect]
     Active Substance: LENALIDOMIDE
     Indication: Follicular lymphoma
     Dosage: THE LAST DOSE OF LENALIDOMIDE PRIOR TO THE SAE WAS ADMINISTERED ON 31/JUL/2023.
     Route: 048
     Dates: start: 20221117
  4. TAFASITAMAB-CXIX [Suspect]
     Active Substance: TAFASITAMAB-CXIX
     Indication: Follicular lymphoma
     Dosage: THE LAST DOSE OF TAFASITAMAB PRIOR TO THE SAE WAS ADMINISTERED ON 27/JUL/2023.
     Route: 042
     Dates: start: 20221117

REACTIONS (1)
  - COVID-19 pneumonia [Recovered/Resolved]

NARRATIVE: CASE EVENT DATE: 20230801
